FAERS Safety Report 24619195 (Version 1)
Quarter: 2024Q4

REPORT INFORMATION
  Report Type: Spontaneous
  Country: US (occurrence: US)
  Receive Date: 20241114
  Receipt Date: 20241114
  Transmission Date: 20250114
  Serious: Yes (Death)
  Sender: DAIICHI
  Company Number: US-DSJP-DS-2024-107871-USAA

PATIENT
  Age: 41 Year
  Sex: Male

DRUGS (1)
  1. VANFLYTA [Suspect]
     Active Substance: QUIZARTINIB DIHYDROCHLORIDE
     Indication: Acute myeloid leukaemia
     Dosage: 26.5 MG
     Route: 048
     Dates: start: 20240820, end: 20241011

REACTIONS (1)
  - Death [Fatal]

NARRATIVE: CASE EVENT DATE: 20241011
